FAERS Safety Report 5682931-8 (Version None)
Quarter: 2008Q1

REPORT INFORMATION
  Report Type: 
  Country: None (occurrence: None)
  Receive Date: 20080327
  Receipt Date: 20080128
  Transmission Date: 20080703
  Serious: Yes (Death)
  Sender: FDA-Public Use
  Company Number: US-TYCO HEALTHCARE/MALLINCKRODT-T200800467

PATIENT

DRUGS (7)
  1. OXYCODONE HCL [Suspect]
     Route: 048
  2. METHADOSE [Suspect]
     Route: 048
  3. BENZODIAZEPINE DERIVATIVES [Suspect]
     Route: 048
  4. ETHANOL [Suspect]
     Route: 048
  5. CARISOPRODOL [Suspect]
     Route: 048
  6. AMLODIPINE [Suspect]
     Route: 048
  7. OLMESARTAN MEDOXOMIL [Suspect]
     Route: 048

REACTIONS (1)
  - CARDIO-RESPIRATORY ARREST [None]
